FAERS Safety Report 8172528-2 (Version None)
Quarter: 2012Q1

REPORT INFORMATION
  Report Type: 
  Country: None (occurrence: None)
  Receive Date: 20120227
  Receipt Date: 20120227
  Transmission Date: 20120608
  Serious: Yes (Hospitalization)
  Sender: FDA-Public Use
  Company Number: None

PATIENT
  Age: 24 Year
  Sex: Male
  Weight: 95 kg

DRUGS (3)
  1. BENADRYL [Concomitant]
  2. HEROIN [Suspect]
     Indication: DRUG ABUSE
  3. TYLENOL PM [Suspect]

REACTIONS (8)
  - ACUTE HEPATIC FAILURE [None]
  - ISCHAEMIC HEPATITIS [None]
  - PULMONARY OEDEMA [None]
  - RHABDOMYOLYSIS [None]
  - MENTAL STATUS CHANGES [None]
  - HAEMODIALYSIS [None]
  - DRUG ABUSE [None]
  - RENAL TUBULAR NECROSIS [None]
